FAERS Safety Report 6232598-5 (Version None)
Quarter: 2009Q2

REPORT INFORMATION
  Report Type: 
  Country: None (occurrence: None)
  Receive Date: 20090617
  Receipt Date: 20090612
  Transmission Date: 20091009
  Serious: Yes (Death, Hospitalization)
  Sender: FDA-Public Use
  Company Number: US-AMGEN-US337988

PATIENT
  Sex: Male

DRUGS (12)
  1. NPLATE [Suspect]
     Indication: IDIOPATHIC THROMBOCYTOPENIC PURPURA
     Route: 058
     Dates: start: 20081117, end: 20081117
  2. CORTICOSTEROID NOS [Concomitant]
     Route: 042
     Dates: start: 20081117
  3. RITUXIMAB [Concomitant]
     Route: 065
  4. PROCRIT [Concomitant]
     Dates: start: 20081101
  5. CEFTAZIDIME [Concomitant]
     Dates: start: 20081101, end: 20081112
  6. INDOCIN [Concomitant]
     Dates: start: 20081101
  7. NEXIUM [Concomitant]
     Dates: start: 20081101
  8. VANCOMYCIN HCL [Concomitant]
     Dates: start: 20081107
  9. DECADRON [Concomitant]
     Route: 042
  10. ZITHROMAX [Concomitant]
     Dates: end: 20081112
  11. LEVOPHED [Concomitant]
     Dates: start: 20081117
  12. HUMAN RED BLOOD CELLS [Concomitant]
     Dates: start: 20081117

REACTIONS (3)
  - ANAEMIA [None]
  - DEATH [None]
  - SEPSIS [None]
